FAERS Safety Report 6273850-7 (Version None)
Quarter: 2009Q3

REPORT INFORMATION
  Report Type: 
  Country: None (occurrence: None)
  Receive Date: 20090716
  Receipt Date: 20090710
  Transmission Date: 20100115
  Serious: Yes (Hospitalization)
  Sender: FDA-Public Use
  Company Number: ADR8712009

PATIENT
  Age: 24 Year
  Sex: Female

DRUGS (2)
  1. LAMOTRIGINE [Suspect]
     Dosage: 4200 MG, DAILY 100 MG TWICE/D
  2. MIRTAZAPINE [Concomitant]

REACTIONS (9)
  - ALCOHOL ABUSE [None]
  - ATAXIA [None]
  - DEHYDRATION [None]
  - DYSARTHRIA [None]
  - INTENTIONAL OVERDOSE [None]
  - LETHARGY [None]
  - NYSTAGMUS [None]
  - PANCREATITIS [None]
  - TACHYCARDIA [None]
